FAERS Safety Report 23095529 (Version 1)
Quarter: 2023Q4

REPORT INFORMATION
  Report Type: Spontaneous
  Country: US (occurrence: None)
  Receive Date: 20231019
  Receipt Date: 20231019
  Transmission Date: 20240109
  Serious: Yes (Hospitalization)
  Sender: FDA-Public Use
  Company Number: None

PATIENT
  Age: 53 Year
  Sex: Male
  Weight: 98 kg

DRUGS (1)
  1. ALLOPURINOL [Suspect]
     Active Substance: ALLOPURINOL
     Dosage: FREQUENCY : DAILY;?
     Route: 048
     Dates: start: 20221229, end: 20230201

REACTIONS (2)
  - Drug reaction with eosinophilia and systemic symptoms [None]
  - Drug-induced liver injury [None]

NARRATIVE: CASE EVENT DATE: 20230201
